FAERS Safety Report 7416783-2 (Version None)
Quarter: 2011Q2

REPORT INFORMATION
  Report Type: 
  Country: None (occurrence: None)
  Receive Date: 20110415
  Receipt Date: 20091211
  Transmission Date: 20111010
  Serious: No
  Sender: FDA-Public Use
  Company Number: 2009BI040951

PATIENT
  Age: 63 Year
  Sex: Female

DRUGS (2)
  1. TYSABRI [Suspect]
     Indication: MULTIPLE SCLEROSIS
     Route: 042
     Dates: start: 20081110
  2. AVONEX [Concomitant]
     Route: 030

REACTIONS (1)
  - ASTHENIA [None]
